FAERS Safety Report 23271288 (Version 2)
Quarter: 2023Q4

REPORT INFORMATION
  Report Type: Spontaneous
  Country: BR (occurrence: None)
  Receive Date: 20231207
  Receipt Date: 20231220
  Transmission Date: 20240110
  Serious: Yes (Other)
  Sender: FDA-Public Use
  Company Number: BR-ROCHE-3470259

PATIENT
  Age: 46 Year
  Sex: Female

DRUGS (5)
  1. RITUXIMAB [Suspect]
     Active Substance: RITUXIMAB
     Indication: Optic neuritis
     Route: 065
  2. SATRALIZUMAB [Concomitant]
     Active Substance: SATRALIZUMAB
  3. LIDOCAINE [Concomitant]
     Active Substance: LIDOCAINE
     Route: 065
  4. CAPSAICIN [Concomitant]
     Active Substance: CAPSAICIN
     Route: 065
  5. ACETAMINOPHEN;IBUPROFEN [Concomitant]

REACTIONS (3)
  - Myelitis transverse [Unknown]
  - Injection site pain [Unknown]
  - Off label use [Unknown]
